FAERS Safety Report 4833537-1 (Version None)
Quarter: 2005Q4

REPORT INFORMATION
  Report Type: 
  Country: None (occurrence: None)
  Receive Date: 20051117
  Receipt Date: 20051102
  Transmission Date: 20060501
  Serious: Yes (Hospitalization)
  Sender: FDA-Public Use
  Company Number: 2005-BP-19150RO

PATIENT
  Age: 16 Year
  Sex: Female

DRUGS (2)
  1. DICLOFENAC (DICLOFENAC) [Suspect]
     Indication: POSTOPERATIVE ANALGESIA
     Dosage: 150 MG (75 MG), PO
     Route: 048
  2. CLINDAMYCIN [Suspect]
     Indication: BACTERIAL INFECTION
     Dosage: 900 MG (300 MG), PO
     Route: 048

REACTIONS (4)
  - ANAEMIA [None]
  - LARGE INTESTINE PERFORATION [None]
  - PERITONITIS [None]
  - PROTHROMBIN TIME SHORTENED [None]
